FAERS Safety Report 22330955 (Version 1)
Quarter: 2023Q2

REPORT INFORMATION
  Report Type: Spontaneous
  Country: US (occurrence: None)
  Receive Date: 20230515
  Receipt Date: 20230515
  Transmission Date: 20230721
  Serious: No
  Sender: FDA-Public Use
  Company Number: None

PATIENT
  Age: 56 Year
  Sex: Female
  Weight: 72.9 kg

DRUGS (6)
  1. BUPROPION XL [Suspect]
     Active Substance: BUPROPION HYDROCHLORIDE
     Indication: Generalised anxiety disorder
     Dosage: OTHER QUANTITY : 30 TABLET(S);?
     Route: 048
     Dates: start: 20170501
  2. LEVOTHYROXINE [Concomitant]
  3. ESTRADIOL [Concomitant]
  4. LEXAPRO [Concomitant]
     Active Substance: ESCITALOPRAM OXALATE
  5. PROBIOTIC [Concomitant]
  6. PEPCID [Concomitant]

REACTIONS (3)
  - Abdominal pain [None]
  - Product odour abnormal [None]
  - Product quality issue [None]

NARRATIVE: CASE EVENT DATE: 20230510
